FAERS Safety Report 7079633-2 (Version None)
Quarter: 2010Q4

REPORT INFORMATION
  Report Type: 
  Country: None (occurrence: None)
  Receive Date: 20101102
  Receipt Date: 20101020
  Transmission Date: 20110411
  Serious: Yes (Other)
  Sender: FDA-Public Use
  Company Number: PHHY2010CY70092

PATIENT
  Sex: Female

DRUGS (1)
  1. ZOMETA [Suspect]
     Dosage: 4 MG/MONTHLY
     Route: 042
     Dates: start: 20050207, end: 20080604

REACTIONS (1)
  - OSTEONECROSIS OF JAW [None]
